FAERS Safety Report 5862911-X (Version None)
Quarter: 2008Q3

REPORT INFORMATION
  Report Type: 
  Country: None (occurrence: None)
  Receive Date: 20080828
  Receipt Date: 20080821
  Transmission Date: 20090109
  Serious: Yes (Hospitalization)
  Sender: FDA-Public Use
  Company Number: A0744740A

PATIENT
  Age: 56 Year
  Sex: Female
  Weight: 70.5 kg

DRUGS (8)
  1. AVANDIA [Suspect]
     Dosage: 4MG PER DAY
     Route: 048
     Dates: start: 20050701, end: 20070601
  2. GLUCOPHAGE [Concomitant]
     Dates: start: 20060101, end: 20060101
  3. METFORMIN HCL [Concomitant]
     Dates: start: 20061001
  4. LANTUS [Concomitant]
     Dates: start: 20060501
  5. DIABETA [Concomitant]
     Dates: start: 20070601
  6. LISINOPRIL [Concomitant]
     Dates: start: 20070101
  7. ASPIRIN [Concomitant]
     Dates: start: 20070101
  8. LIPITOR [Concomitant]
     Dates: start: 20050301, end: 20070301

REACTIONS (4)
  - ACUTE CORONARY SYNDROME [None]
  - CARDIAC FAILURE CONGESTIVE [None]
  - HYPERTENSION [None]
  - LACUNAR INFARCTION [None]
